FAERS Safety Report 21825769 (Version 1)
Quarter: 2023Q1

REPORT INFORMATION
  Report Type: Spontaneous
  Country: US (occurrence: US)
  Receive Date: 20230105
  Receipt Date: 20230105
  Transmission Date: 20230418
  Serious: No
  Sender: FDA-Public Use
  Company Number: US-drreddys-SPO/USA/22/0158872

PATIENT
  Age: 32 Year
  Sex: Female

DRUGS (1)
  1. ZENATANE [Suspect]
     Active Substance: ISOTRETINOIN
     Indication: Acne
     Dosage: RMA ISSUE DATE: 06 SEPTEMBER 2022 10:02:49 AM, 05 OCTOBER 2022 05:38:28 PM, 07 NOVEMBER 2022 06:46:3

REACTIONS (1)
  - Treatment noncompliance [Unknown]
